FAERS Safety Report 8939405 (Version 1)
Quarter: 2012Q4

REPORT INFORMATION
  Report Type: 
  Country: US (occurrence: US)
  Receive Date: 20121203
  Receipt Date: 20121203
  Transmission Date: 20130627
  Serious: Yes (Death, Hospitalization)
  Sender: FDA-Public Use
  Company Number: US-JNJFOC-20121114184

PATIENT
  Age: 64 Year
  Sex: Female
  Weight: 82.7 kg

DRUGS (25)
  1. LEVAQUIN [Suspect]
     Indication: PRODUCT USED FOR UNKNOWN INDICATION
     Dosage: for 10 days
     Route: 048
     Dates: start: 20110110
  2. BEVACIZUMAB [Suspect]
     Indication: GLIOBLASTOMA
     Route: 042
     Dates: start: 20101104
  3. BEVACIZUMAB [Suspect]
     Indication: GLIOBLASTOMA
     Route: 042
     Dates: start: 20101208, end: 20110103
  4. IRINOTECAN [Suspect]
     Indication: GLIOBLASTOMA
     Route: 042
     Dates: start: 20101208, end: 20110103
  5. IRINOTECAN [Suspect]
     Indication: GLIOBLASTOMA
     Route: 042
     Dates: start: 20101104
  6. TEMODAR [Suspect]
     Indication: GLIOBLASTOMA
     Route: 048
     Dates: start: 20101104, end: 20101108
  7. TEMODAR [Suspect]
     Indication: GLIOBLASTOMA
     Route: 048
     Dates: start: 20101208, end: 20110103
  8. VITAMIN B12 [Concomitant]
     Dosage: 1000 U
     Route: 048
  9. SIMVASTATIN [Concomitant]
     Route: 048
  10. DOCUSATE SODIUM [Concomitant]
     Dosage: 100 mg 1 in 2 days
     Route: 065
  11. BISOPROLOL [Concomitant]
     Route: 048
  12. BISOPROLOL [Concomitant]
     Route: 048
  13. HCTZ [Concomitant]
     Route: 065
  14. XANAX [Concomitant]
     Dosage: as needed
     Route: 065
  15. LACTOBACILLUS [Concomitant]
     Route: 048
  16. CALCIUM MEDICATIONS [Concomitant]
     Indication: MINERAL SUPPLEMENTATION
     Route: 065
  17. MULTIVITAMINS [Concomitant]
     Route: 065
  18. OMEPRAZOLE [Concomitant]
     Route: 065
  19. KEPPRA [Concomitant]
     Route: 065
  20. VALTURNA [Concomitant]
     Dosage: Aliskeren fymarate - 150 mg,valsartan- 160 mg.
     Route: 048
  21. TEMAZEPAM [Concomitant]
     Route: 048
  22. DECADRON [Concomitant]
     Route: 048
  23. LEVETIRACETAM [Concomitant]
     Route: 065
  24. VALSARTAN [Concomitant]
     Route: 065
  25. ALISKIREN [Concomitant]
     Route: 062

REACTIONS (2)
  - Stevens-Johnson syndrome [Unknown]
  - Death [Fatal]
